FAERS Safety Report 20850343 (Version 2)
Quarter: 2025Q2

REPORT INFORMATION
  Report Type: Spontaneous
  Country: CA (occurrence: CA)
  Receive Date: 20220519
  Receipt Date: 20250616
  Transmission Date: 20250716
  Serious: Yes (Death, Life-Threatening, Hospitalization, Disabling, Other)
  Sender: BOEHRINGER INGELHEIM
  Company Number: CA-BoehringerIngelheim-2022-BI-170443

PATIENT
  Age: 59 Year
  Sex: Female
  Weight: 68 kg

DRUGS (135)
  1. MICARDIS [Suspect]
     Active Substance: TELMISARTAN
     Indication: Product used for unknown indication
  2. MORPHINE SULFATE [Suspect]
     Active Substance: MORPHINE SULFATE
     Indication: Rheumatoid arthritis
  3. CERTOLIZUMAB PEGOL [Suspect]
     Active Substance: CERTOLIZUMAB PEGOL
     Indication: Rheumatoid arthritis
  4. CERTOLIZUMAB PEGOL [Suspect]
     Active Substance: CERTOLIZUMAB PEGOL
  5. CERTOLIZUMAB PEGOL [Suspect]
     Active Substance: CERTOLIZUMAB PEGOL
  6. ZOPICLONE [Suspect]
     Active Substance: ZOPICLONE
     Indication: Product used for unknown indication
  7. DOXYCYCLINE [Suspect]
     Active Substance: DOXYCYCLINE
     Indication: Product used for unknown indication
  8. ENBREL [Suspect]
     Active Substance: ETANERCEPT
     Indication: Rheumatoid arthritis
  9. ENBREL [Suspect]
     Active Substance: ETANERCEPT
     Indication: Product used for unknown indication
  10. ENBREL [Suspect]
     Active Substance: ETANERCEPT
  11. ENBREL [Suspect]
     Active Substance: ETANERCEPT
  12. ENBREL [Suspect]
     Active Substance: ETANERCEPT
  13. HUMIRA [Suspect]
     Active Substance: ADALIMUMAB
     Indication: Rheumatoid arthritis
  14. HUMIRA [Suspect]
     Active Substance: ADALIMUMAB
     Indication: Product used for unknown indication
  15. HUMIRA [Suspect]
     Active Substance: ADALIMUMAB
  16. STELARA [Suspect]
     Active Substance: USTEKINUMAB
     Indication: Product used for unknown indication
  17. STELARA [Suspect]
     Active Substance: USTEKINUMAB
  18. LEFLUNOMIDE [Suspect]
     Active Substance: LEFLUNOMIDE
     Indication: Rheumatoid arthritis
  19. LEFLUNOMIDE [Suspect]
     Active Substance: LEFLUNOMIDE
     Indication: Product used for unknown indication
  20. FOSAMAX [Suspect]
     Active Substance: ALENDRONATE SODIUM
     Indication: Rheumatoid arthritis
  21. FOSAMAX [Suspect]
     Active Substance: ALENDRONATE SODIUM
  22. MYOCHRYSINE [Suspect]
     Active Substance: GOLD SODIUM THIOMALATE
     Indication: Product used for unknown indication
  23. RITUXIMAB [Suspect]
     Active Substance: RITUXIMAB
     Indication: Rheumatoid arthritis
  24. RITUXIMAB [Suspect]
     Active Substance: RITUXIMAB
     Indication: Product used for unknown indication
  25. RITUXIMAB [Suspect]
     Active Substance: RITUXIMAB
  26. RITUXIMAB [Suspect]
     Active Substance: RITUXIMAB
  27. ADALIMUMAB [Suspect]
     Active Substance: ADALIMUMAB
     Indication: Rheumatoid arthritis
  28. ADALIMUMAB [Suspect]
     Active Substance: ADALIMUMAB
  29. LEFLUNOMIDE [Suspect]
     Active Substance: LEFLUNOMIDE
     Indication: Rheumatoid arthritis
  30. LEFLUNOMIDE [Suspect]
     Active Substance: LEFLUNOMIDE
  31. LEFLUNOMIDE [Suspect]
     Active Substance: LEFLUNOMIDE
  32. LEFLUNOMIDE [Suspect]
     Active Substance: LEFLUNOMIDE
  33. METHOTREXATE [Suspect]
     Active Substance: METHOTREXATE
     Indication: Crohn^s disease
  34. METHOTREXATE [Suspect]
     Active Substance: METHOTREXATE
     Indication: Rheumatoid arthritis
  35. METHOTREXATE [Suspect]
     Active Substance: METHOTREXATE
  36. METHOTREXATE [Suspect]
     Active Substance: METHOTREXATE
  37. METHOTREXATE [Suspect]
     Active Substance: METHOTREXATE
  38. METHOTREXATE [Suspect]
     Active Substance: METHOTREXATE
  39. INFLIXIMAB [Suspect]
     Active Substance: INFLIXIMAB
     Indication: Rheumatoid arthritis
  40. INFLIXIMAB [Suspect]
     Active Substance: INFLIXIMAB
     Indication: Crohn^s disease
  41. AZATHIOPRINE [Suspect]
     Active Substance: AZATHIOPRINE
     Indication: Product used for unknown indication
  42. FOLIC ACID [Suspect]
     Active Substance: FOLIC ACID
     Indication: Rheumatoid arthritis
  43. FOLIC ACID [Suspect]
     Active Substance: FOLIC ACID
  44. FOLIC ACID [Suspect]
     Active Substance: FOLIC ACID
  45. FOLIC ACID [Suspect]
     Active Substance: FOLIC ACID
  46. HYDROXYCHLOROQUINE SULFATE [Suspect]
     Active Substance: HYDROXYCHLOROQUINE SULFATE
     Indication: Systemic lupus erythematosus
  47. HYDROXYCHLOROQUINE SULFATE [Suspect]
     Active Substance: HYDROXYCHLOROQUINE SULFATE
     Indication: Rheumatoid arthritis
  48. HYDROXYCHLOROQUINE SULFATE [Suspect]
     Active Substance: HYDROXYCHLOROQUINE SULFATE
  49. HYDROXYCHLOROQUINE SULFATE [Suspect]
     Active Substance: HYDROXYCHLOROQUINE SULFATE
  50. CYCLOSPORINE [Suspect]
     Active Substance: CYCLOSPORINE
     Indication: Psoriasis
  51. PREDNISONE [Suspect]
     Active Substance: PREDNISONE
     Indication: Rheumatoid arthritis
  52. PREDNISONE [Suspect]
     Active Substance: PREDNISONE
     Indication: Arthralgia
  53. PREDNISONE [Suspect]
     Active Substance: PREDNISONE
     Indication: Condition aggravated
  54. ARAVA [Suspect]
     Active Substance: LEFLUNOMIDE
     Indication: Rheumatoid arthritis
  55. ARAVA [Suspect]
     Active Substance: LEFLUNOMIDE
  56. ARAVA [Suspect]
     Active Substance: LEFLUNOMIDE
  57. ARAVA [Suspect]
     Active Substance: LEFLUNOMIDE
  58. ASACOL [Suspect]
     Active Substance: MESALAMINE
     Indication: Crohn^s disease
  59. CIMZIA [Suspect]
     Active Substance: CERTOLIZUMAB PEGOL
     Indication: Psoriasis
  60. CIMZIA [Suspect]
     Active Substance: CERTOLIZUMAB PEGOL
     Indication: Rheumatoid arthritis
  61. CIMZIA [Suspect]
     Active Substance: CERTOLIZUMAB PEGOL
     Indication: Crohn^s disease
  62. CIMZIA [Suspect]
     Active Substance: CERTOLIZUMAB PEGOL
  63. CORTISONE ACETATE [Suspect]
     Active Substance: CORTISONE ACETATE
     Indication: Rheumatoid arthritis
  64. CORTISONE ACETATE [Suspect]
     Active Substance: CORTISONE ACETATE
  65. DESOXIMETASONE [Suspect]
     Active Substance: DESOXIMETASONE
     Indication: Rheumatoid arthritis
  66. DESOXIMETASONE [Suspect]
     Active Substance: DESOXIMETASONE
     Indication: Product used for unknown indication
  67. DESOXIMETASONE [Suspect]
     Active Substance: DESOXIMETASONE
  68. GOLIMUMAB [Suspect]
     Active Substance: GOLIMUMAB
     Indication: Rheumatoid arthritis
  69. GOLIMUMAB [Suspect]
     Active Substance: GOLIMUMAB
     Indication: Product used for unknown indication
  70. ORENCIA [Suspect]
     Active Substance: ABATACEPT
     Indication: Rheumatoid arthritis
  71. ORENCIA [Suspect]
     Active Substance: ABATACEPT
     Indication: Product used for unknown indication
  72. ORENCIA [Suspect]
     Active Substance: ABATACEPT
  73. OTEZLA [Suspect]
     Active Substance: APREMILAST
     Indication: Rheumatoid arthritis
  74. OTEZLA [Suspect]
     Active Substance: APREMILAST
     Indication: Product used for unknown indication
  75. OTEZLA [Suspect]
     Active Substance: APREMILAST
  76. OTEZLA [Suspect]
     Active Substance: APREMILAST
  77. REMICADE [Suspect]
     Active Substance: INFLIXIMAB
     Indication: Crohn^s disease
  78. REMICADE [Suspect]
     Active Substance: INFLIXIMAB
     Indication: Rheumatoid arthritis
  79. REMICADE [Suspect]
     Active Substance: INFLIXIMAB
     Indication: Ankylosing spondylitis
  80. REMICADE [Suspect]
     Active Substance: INFLIXIMAB
  81. REMICADE [Suspect]
     Active Substance: INFLIXIMAB
  82. SIMPONI [Suspect]
     Active Substance: GOLIMUMAB
     Indication: Rheumatoid arthritis
     Dosage: SOLUTION SUBCUTANEOUS
  83. SIMPONI [Suspect]
     Active Substance: GOLIMUMAB
  84. SIMPONI [Suspect]
     Active Substance: GOLIMUMAB
  85. SULFASALAZINE [Suspect]
     Active Substance: SULFASALAZINE
     Indication: Rheumatoid arthritis
  86. SULFASALAZINE [Suspect]
     Active Substance: SULFASALAZINE
  87. SULFASALAZINE [Suspect]
     Active Substance: SULFASALAZINE
  88. SULFASALAZINE [Suspect]
     Active Substance: SULFASALAZINE
  89. SULFASALAZINE [Suspect]
     Active Substance: SULFASALAZINE
  90. SULFASALAZINE [Suspect]
     Active Substance: SULFASALAZINE
  91. SULFASALAZINE [Suspect]
     Active Substance: SULFASALAZINE
  92. SULFASALAZINE [Suspect]
     Active Substance: SULFASALAZINE
  93. XELJANZ [Suspect]
     Active Substance: TOFACITINIB CITRATE
     Indication: Rheumatoid arthritis
  94. XELJANZ [Suspect]
     Active Substance: TOFACITINIB CITRATE
  95. XELJANZ [Suspect]
     Active Substance: TOFACITINIB CITRATE
  96. XELJANZ [Suspect]
     Active Substance: TOFACITINIB CITRATE
  97. XELJANZ [Suspect]
     Active Substance: TOFACITINIB CITRATE
  98. ACTEMRA [Suspect]
     Active Substance: TOCILIZUMAB
     Indication: Rheumatoid arthritis
  99. ACTEMRA [Suspect]
     Active Substance: TOCILIZUMAB
  100. ACTEMRA [Suspect]
     Active Substance: TOCILIZUMAB
  101. COSENTYX [Suspect]
     Active Substance: SECUKINUMAB
     Indication: Product used for unknown indication
  102. MINOCYCLINE HYDROCHLORIDE [Suspect]
     Active Substance: MINOCYCLINE HYDROCHLORIDE
     Indication: Product used for unknown indication
  103. PHTHALYLSULFATHIAZOLE [Suspect]
     Active Substance: PHTHALYLSULFATHIAZOLE
     Indication: Product used for unknown indication
  104. PHTHALYLSULFATHIAZOLE [Suspect]
     Active Substance: PHTHALYLSULFATHIAZOLE
  105. PHTHALYLSULFATHIAZOLE [Suspect]
     Active Substance: PHTHALYLSULFATHIAZOLE
  106. SIRUKUMAB [Suspect]
     Active Substance: SIRUKUMAB
     Indication: Product used for unknown indication
  107. SIRUKUMAB [Suspect]
     Active Substance: SIRUKUMAB
  108. TOCILIZUMAB [Suspect]
     Active Substance: TOCILIZUMAB
     Indication: Rheumatoid arthritis
  109. TOCILIZUMAB [Suspect]
     Active Substance: TOCILIZUMAB
  110. TOCILIZUMAB [Suspect]
     Active Substance: TOCILIZUMAB
  111. TOCILIZUMAB [Suspect]
     Active Substance: TOCILIZUMAB
  112. TOCILIZUMAB [Suspect]
     Active Substance: TOCILIZUMAB
  113. USTEKINUMAB [Suspect]
     Active Substance: USTEKINUMAB
     Indication: Crohn^s disease
  114. USTEKINUMAB [Suspect]
     Active Substance: USTEKINUMAB
  115. AMLODIPINE BESYLATE [Suspect]
     Active Substance: AMLODIPINE BESYLATE
     Indication: Product used for unknown indication
  116. PREDNISONE [Suspect]
     Active Substance: PREDNISONE
     Indication: Condition aggravated
  117. PREDNISONE [Suspect]
     Active Substance: PREDNISONE
  118. APREMILAST [Suspect]
     Active Substance: APREMILAST
     Indication: Product used for unknown indication
  119. CETIRIZINE [Suspect]
     Active Substance: CETIRIZINE HYDROCHLORIDE
     Indication: Rheumatoid arthritis
  120. ERELZI [Suspect]
     Active Substance: ETANERCEPT-SZZS
     Indication: Rheumatoid arthritis
  121. ERELZI [Suspect]
     Active Substance: ETANERCEPT-SZZS
  122. KEVZARA [Suspect]
     Active Substance: SARILUMAB
     Indication: Rheumatoid arthritis
  123. MINOCYCLINE [Suspect]
     Active Substance: MINOCYCLINE HYDROCHLORIDE
     Indication: Product used for unknown indication
  124. PREDNISONE ACETATE [Suspect]
     Active Substance: PREDNISONE ACETATE
     Indication: Product used for unknown indication
  125. PSEUDOEPHEDRINE HYDROCHLORIDE [Suspect]
     Active Substance: PSEUDOEPHEDRINE HYDROCHLORIDE
     Indication: Rheumatoid arthritis
  126. SECUKINUMAB [Suspect]
     Active Substance: SECUKINUMAB
     Indication: Product used for unknown indication
  127. WELLBUTRIN [Concomitant]
     Active Substance: BUPROPION HYDROCHLORIDE
     Indication: Product used for unknown indication
  128. SULFASALAZINE [Concomitant]
     Active Substance: SULFASALAZINE
     Indication: Product used for unknown indication
  129. HYDROMORPHONE HYDROCHLORIDE [Concomitant]
     Active Substance: HYDROMORPHONE HYDROCHLORIDE
     Indication: Product used for unknown indication
  130. HYDROMORPHONE HYDROCHLORIDE [Concomitant]
     Active Substance: HYDROMORPHONE HYDROCHLORIDE
  131. DILAUDID [Concomitant]
     Active Substance: HYDROMORPHONE HYDROCHLORIDE
     Indication: Pain
  132. BUPROPION HYDROCHLORIDE [Concomitant]
     Active Substance: BUPROPION HYDROCHLORIDE
     Indication: Product used for unknown indication
  133. BUPROPION [Concomitant]
     Active Substance: BUPROPION
     Indication: Product used for unknown indication
  134. BETAMETHASONE [Concomitant]
     Active Substance: BETAMETHASONE
     Indication: Product used for unknown indication
  135. AMITRIPTYLINE [Concomitant]
     Active Substance: AMITRIPTYLINE
     Indication: Product used for unknown indication

REACTIONS (46)
  - Adverse drug reaction [Fatal]
  - Adverse event [Fatal]
  - Blister [Fatal]
  - Blood cholesterol increased [Fatal]
  - Bronchitis [Fatal]
  - Contraindicated product administered [Fatal]
  - Drug ineffective [Fatal]
  - Maternal exposure during pregnancy [Fatal]
  - Helicobacter infection [Fatal]
  - Hypercholesterolaemia [Fatal]
  - Hypertension [Fatal]
  - Injury [Fatal]
  - Intentional product use issue [Fatal]
  - Liver injury [Fatal]
  - Maternal exposure during pregnancy [Fatal]
  - Nasopharyngitis [Fatal]
  - Product use in unapproved indication [Fatal]
  - Product use issue [Fatal]
  - Rheumatic fever [Fatal]
  - Therapeutic product effect decreased [Fatal]
  - Therapeutic product effect incomplete [Fatal]
  - Treatment failure [Fatal]
  - Type 2 diabetes mellitus [Fatal]
  - Arthritis [Not Recovered/Not Resolved]
  - Bone erosion [Not Recovered/Not Resolved]
  - Dizziness [Not Recovered/Not Resolved]
  - Drug hypersensitivity [Not Recovered/Not Resolved]
  - Drug intolerance [Not Recovered/Not Resolved]
  - Drug-induced liver injury [Not Recovered/Not Resolved]
  - Exostosis [Not Recovered/Not Resolved]
  - Foot deformity [Not Recovered/Not Resolved]
  - Headache [Not Recovered/Not Resolved]
  - Hepatic cirrhosis [Not Recovered/Not Resolved]
  - Infection [Not Recovered/Not Resolved]
  - Joint dislocation [Not Recovered/Not Resolved]
  - Joint stiffness [Not Recovered/Not Resolved]
  - Malaise [Not Recovered/Not Resolved]
  - Nausea [Not Recovered/Not Resolved]
  - Off label use [Not Recovered/Not Resolved]
  - Osteoarthritis [Not Recovered/Not Resolved]
  - Pneumonia [Not Recovered/Not Resolved]
  - Psoriasis [Not Recovered/Not Resolved]
  - Synovitis [Not Recovered/Not Resolved]
  - Tachycardia [Not Recovered/Not Resolved]
  - Upper respiratory tract infection [Not Recovered/Not Resolved]
  - Osteoporosis [Not Recovered/Not Resolved]
